FAERS Safety Report 24584261 (Version 1)
Quarter: 2024Q4

REPORT INFORMATION
  Report Type: Spontaneous
  Country: US (occurrence: None)
  Receive Date: 20241105
  Receipt Date: 20241105
  Transmission Date: 20250115
  Serious: Yes (Other)
  Sender: Public
  Company Number: None

PATIENT
  Age: 60 Year
  Sex: Male
  Weight: 171 kg

DRUGS (6)
  1. KETOROLAC TROMETHAMINE [Suspect]
     Active Substance: KETOROLAC TROMETHAMINE
     Indication: Arthritis
     Dosage: OTHER QUANTITY : 1 INJECTION(S);?FREQUENCY : DAILY;?
     Route: 058
  2. ULORIC [Concomitant]
     Active Substance: FEBUXOSTAT
  3. LISINOPRIL [Concomitant]
     Active Substance: LISINOPRIL
  4. tyl4 [Concomitant]
  5. UNSPECIFIED INGREDIENT [Concomitant]
     Active Substance: UNSPECIFIED INGREDIENT
  6. aspirin [Concomitant]

REACTIONS (3)
  - Infection [None]
  - Muscle spasms [None]
  - Blood glucose increased [None]

NARRATIVE: CASE EVENT DATE: 20240907
